FAERS Safety Report 23630210 (Version 1)
Quarter: 2024Q1

REPORT INFORMATION
  Report Type: Report from Study
  Country: US (occurrence: US)
  Receive Date: 20240314
  Receipt Date: 20240314
  Transmission Date: 20240410
  Serious: Yes (Death, Hospitalization, Other)
  Sender: FDA-Public Use
  Company Number: US-ACADIA PHARMACEUTICALS INC.-ACA-2022-PIM-004235

PATIENT
  Age: 75 Year
  Sex: Male

DRUGS (16)
  1. NUPLAZID [Suspect]
     Active Substance: PIMAVANSERIN TARTRATE
     Indication: Parkinson^s disease
     Dosage: 34 MILLIGRAM, QD
     Route: 048
     Dates: start: 20200423
  2. NUPLAZID [Suspect]
     Active Substance: PIMAVANSERIN TARTRATE
     Indication: Hallucination
  3. NUPLAZID [Suspect]
     Active Substance: PIMAVANSERIN TARTRATE
     Indication: Delusion
  4. BACLOFEN [Concomitant]
     Active Substance: BACLOFEN
     Dosage: 20 MILLIGRAM
  5. DOCUSATE SODIUM [Concomitant]
     Active Substance: DOCUSATE SODIUM
     Dosage: 100 MILLIGRAM
  6. FUROSEMIDE [Concomitant]
     Active Substance: FUROSEMIDE
     Dosage: 20 MILLIGRAM
  7. GLUCOSAMINE [Concomitant]
     Active Substance: GLUCOSAMINE
  8. LYRICA [Concomitant]
     Active Substance: PREGABALIN
  9. MORPHINE SULFATE [Concomitant]
     Active Substance: MORPHINE SULFATE
     Dosage: 15 MILLIGRAM
  10. MORPHINE SULFATE [Concomitant]
     Active Substance: MORPHINE SULFATE
     Dosage: 30 MILLIGRAM
  11. POTASSIUM CHLORIDE [Concomitant]
     Active Substance: POTASSIUM CHLORIDE
     Dosage: 10 MEQ
  12. PROVIGIL [Concomitant]
     Active Substance: MODAFINIL
     Dosage: 200 MILLIGRAM
  13. REQUIP XL [Concomitant]
     Active Substance: ROPINIROLE HYDROCHLORIDE
  14. SINGULAIR [Concomitant]
     Active Substance: MONTELUKAST SODIUM
     Dosage: 10 MILLIGRAM
  15. TESTOSTERONE [Concomitant]
     Active Substance: TESTOSTERONE
     Dosage: 200 MG/ML
  16. XARELTO [Concomitant]
     Active Substance: RIVAROXABAN

REACTIONS (2)
  - Death [Fatal]
  - Hospitalisation [Recovered/Resolved]

NARRATIVE: CASE EVENT DATE: 20240226
